FAERS Safety Report 4417482-1 (Version None)
Quarter: 2004Q2

REPORT INFORMATION
  Report Type: 
  Country: None (occurrence: None)
  Receive Date: 20040625
  Receipt Date: 20040330
  Transmission Date: 20050107
  Serious: Yes (Life-Threatening)
  Sender: FDA-Public Use
  Company Number: 205310

PATIENT
  Age: 76 Year
  Sex: Female
  Weight: 67.1 kg

DRUGS (7)
  1. AVASTIN [Suspect]
     Indication: COLORECTAL CANCER METASTATIC
     Dosage: 340 MG, Q2W , INTRAVENOUS
     Route: 042
     Dates: start: 20040315
  2. DECADRON [Concomitant]
  3. ZOFRAN [Concomitant]
  4. OXALIPLATIN [Concomitant]
  5. FLUOROURACIL [Concomitant]
  6. LEUCOVORIN CALCIUM [Concomitant]
  7. LOTENSIN HCT (HYDROCHLOROTHIAZIDE, BENAZEPRIL HYDROCHLORIDE) [Concomitant]

REACTIONS (3)
  - HYPERTENSION [None]
  - NAUSEA [None]
  - VOMITING [None]
